FAERS Safety Report 6414966-1 (Version None)
Quarter: 2009Q4

REPORT INFORMATION
  Report Type: 
  Country: None (occurrence: None)
  Receive Date: 20091026
  Receipt Date: 20081229
  Transmission Date: 20100525
  Serious: No
  Sender: FDA-Public Use
  Company Number: US-ABBOTT-09P-163-0495577-00

PATIENT
  Sex: Female
  Weight: 54.48 kg

DRUGS (5)
  1. LUPRON DEPOT [Suspect]
     Indication: ENDOMETRIOSIS
     Route: 030
     Dates: start: 20081224
  2. NEURONTIN [Concomitant]
     Indication: COMPLEX REGIONAL PAIN SYNDROME
     Route: 048
  3. IBUPROFEN [Concomitant]
     Indication: PAIN
     Dosage: PRN
     Route: 048
  4. NORETHINDRONE [Concomitant]
     Indication: HORMONE THERAPY
     Route: 048
     Dates: start: 20081224
  5. NORETHINDRONE [Concomitant]
     Route: 048
     Dates: start: 20081230

REACTIONS (4)
  - ABDOMINAL PAIN [None]
  - COLD SWEAT [None]
  - HYPERHIDROSIS [None]
  - MUSCLE SPASMS [None]
